FAERS Safety Report 16981017 (Version 1)
Quarter: 2019Q4

REPORT INFORMATION
  Report Type: Spontaneous
  Country: MX (occurrence: MX)
  Receive Date: 20191031
  Receipt Date: 20191031
  Transmission Date: 20200122
  Serious: Yes (Death, Other)
  Sender: FDA-Public Use
  Company Number: MX-TAKEDA-2019TUS060941

PATIENT
  Age: 65 Year
  Sex: Female

DRUGS (2)
  1. BLINATUMOMAB [Suspect]
     Active Substance: BLINATUMOMAB
     Indication: CHRONIC MYELOID LEUKAEMIA
     Dosage: UNK
     Route: 065
  2. ICLUSIG [Suspect]
     Active Substance: PONATINIB
     Indication: CHRONIC MYELOID LEUKAEMIA
     Dosage: 45 MILLIGRAM, QD
     Route: 048
     Dates: start: 20190802, end: 20190916

REACTIONS (7)
  - Septic shock [Fatal]
  - Transplantation complication [Fatal]
  - Bone marrow failure [Unknown]
  - Pulmonary toxicity [Unknown]
  - Immunosuppression [Fatal]
  - Oedema [Unknown]
  - Pyrexia [Unknown]
